FAERS Safety Report 21198028 (Version 1)
Quarter: 2022Q3

REPORT INFORMATION
  Report Type: Report from Study
  Country: CA (occurrence: CA)
  Receive Date: 20220810
  Receipt Date: 20220810
  Transmission Date: 20221026
  Serious: Yes (Hospitalization, Other)
  Sender: FDA-Public Use
  Company Number: CA-ABBVIE-22K-028-4497986-00

PATIENT
  Age: 68 Year
  Sex: Female

DRUGS (1)
  1. RINVOQ [Suspect]
     Active Substance: UPADACITINIB
     Indication: Rheumatoid arthritis
     Route: 048
     Dates: start: 20220512

REACTIONS (4)
  - Femur fracture [Recovering/Resolving]
  - Pulmonary thrombosis [Unknown]
  - Postoperative thrombosis [Unknown]
  - Fall [Unknown]

NARRATIVE: CASE EVENT DATE: 20220701
